FAERS Safety Report 6029995-X (Version None)
Quarter: 2009Q1

REPORT INFORMATION
  Report Type: 
  Country: None (occurrence: None)
  Receive Date: 20090107
  Receipt Date: 20090105
  Transmission Date: 20090719
  Serious: Yes (Hospitalization)
  Sender: FDA-Public Use
  Company Number: D0059531A

PATIENT
  Sex: Female

DRUGS (4)
  1. VIANI MITE [Suspect]
     Route: 055
     Dates: start: 20050201
  2. SULTANOL [Suspect]
     Route: 055
  3. FLUTIDE MITE [Suspect]
     Route: 055
     Dates: start: 20040701
  4. ATROVENT [Suspect]
     Route: 055
     Dates: start: 20080501

REACTIONS (7)
  - BRONCHITIS [None]
  - COUGH [None]
  - DERMATITIS [None]
  - INFECTION SUSCEPTIBILITY INCREASED [None]
  - OROPHARYNGEAL PAIN [None]
  - OTITIS MEDIA [None]
  - SINUSITIS [None]
